FAERS Safety Report 13249609 (Version 1)
Quarter: 2017Q1

REPORT INFORMATION
  Report Type: Spontaneous
  Country: US (occurrence: US)
  Receive Date: 20170218
  Receipt Date: 20170218
  Transmission Date: 20170428
  Serious: No
  Sender: FDA-Public Use
  Company Number: US-ALLERGAN-1670015US

PATIENT
  Sex: Female

DRUGS (2)
  1. RESTASIS [Suspect]
     Active Substance: CYCLOSPORINE
     Indication: DRY EYE
     Dosage: UNK, BID
     Route: 047
     Dates: start: 2006
  2. RESTASIS [Suspect]
     Active Substance: CYCLOSPORINE
     Dosage: 4 GTT, UNK
     Route: 047

REACTIONS (8)
  - Eye pain [Not Recovered/Not Resolved]
  - Eye disorder [Recovered/Resolved]
  - Ocular hyperaemia [Not Recovered/Not Resolved]
  - Incorrect product storage [Unknown]
  - Drug dose omission [Unknown]
  - Incorrect dose administered [Unknown]
  - Lacrimation increased [Not Recovered/Not Resolved]
  - Vertigo [Unknown]
